FAERS Safety Report 9828024 (Version 1)
Quarter: 2013Q4

REPORT INFORMATION
  Report Type: Spontaneous
  Country: US (occurrence: None)
  Receive Date: 20131223
  Receipt Date: 20131223
  Transmission Date: 20140711
  Serious: Yes (Other)
  Sender: FDA-Public Use
  Company Number: 218421LEO

PATIENT
  Age: 58 Year
  Sex: Female

DRUGS (6)
  1. PICATO [Suspect]
     Indication: ACTINIC KERATOSIS
     Dosage: 1 IN 1 D
     Route: 061
     Dates: start: 20120716, end: 20120718
  2. FLUOXETINE (FLUOXETINE HYDROCHLORIDE) [Concomitant]
  3. ZINC [Concomitant]
  4. VITAMIN C (ASCORBIC ACID) [Concomitant]
  5. GLUCOSAMINE CHONDROITIN (GLUCOSAMINE W/CHONDROITIN SULFATE) [Concomitant]
  6. GRAPESEED COMPLEX (VITIS VINIFERA SEED) [Concomitant]

REACTIONS (1)
  - Application site burn [None]
